FAERS Safety Report 11697654 (Version 1)
Quarter: 2015Q4

REPORT INFORMATION
  Report Type: Spontaneous
  Country: US (occurrence: US)
  Receive Date: 20151104
  Receipt Date: 20151104
  Transmission Date: 20160304
  Serious: No
  Sender: FDA-Public Use
  Company Number: US-PFIZER INC-2015364954

PATIENT
  Age: 34 Year
  Sex: Male

DRUGS (1)
  1. LATANOPROST. [Suspect]
     Active Substance: LATANOPROST
     Dosage: 1 GTT, (2.5 ML )1X/DAY

REACTIONS (2)
  - Headache [Unknown]
  - Product quality issue [Unknown]
